FAERS Safety Report 25481316 (Version 1)
Quarter: 2025Q2

REPORT INFORMATION
  Report Type: Spontaneous
  Country: FR (occurrence: FR)
  Receive Date: 20250626
  Receipt Date: 20250626
  Transmission Date: 20250716
  Serious: Yes (Hospitalization)
  Sender: CHEPLAPHARM
  Company Number: None

PATIENT
  Age: 62 Year
  Sex: Male
  Weight: 100 kg

DRUGS (12)
  1. BROMAZEPAM [Suspect]
     Active Substance: BROMAZEPAM
     Indication: Product used for unknown indication
     Route: 048
  2. OLANZAPINE [Suspect]
     Active Substance: OLANZAPINE
     Indication: Bipolar disorder
     Dosage: ZYPREXA 10 TIMES TWICE DAILY?DAILY DOSE: 20 MILLIGRAM
     Route: 048
  3. ICLUSIG [Suspect]
     Active Substance: PONATINIB HYDROCHLORIDE
     Indication: Chronic myeloid leukaemia
     Dosage: ICLUSIG 30 MG?DAILY DOSE: 30 MILLIGRAM
     Route: 048
  4. APIXABAN [Suspect]
     Active Substance: APIXABAN
     Indication: Product used for unknown indication
     Dosage: APIXABAN 5 MG TWICE DAILY?DAILY DOSE: 10 MILLIGRAM
     Route: 048
  5. EZETIMIBE\ROSUVASTATIN [Suspect]
     Active Substance: EZETIMIBE\ROSUVASTATIN
     Indication: Product used for unknown indication
     Dosage: LIPOROSA 10/10?DAILY DOSE: 1 DOSAGE FORM
     Route: 048
  6. TAMSULOSIN HYDROCHLORIDE [Suspect]
     Active Substance: TAMSULOSIN HYDROCHLORIDE
     Indication: Product used for unknown indication
     Dosage: TAMSULOSIN 0.4 MG?DAILY DOSE: 0.4 MILLIGRAM
     Route: 048
  7. HERBALS\SAW PALMETTO [Suspect]
     Active Substance: HERBALS\SAW PALMETTO
     Indication: Product used for unknown indication
     Dosage: PERMIXON 160?DAILY DOSE: 160 MILLIGRAM
     Route: 048
  8. DEPAKOTE [Suspect]
     Active Substance: DIVALPROEX SODIUM
     Indication: Product used for unknown indication
     Dosage: DEPAKOTE 500 MG/DAY?DAILY DOSE: 500 MILLIGRAM
     Route: 048
  9. ZOLOFT [Suspect]
     Active Substance: SERTRALINE HYDROCHLORIDE
     Indication: Product used for unknown indication
     Dosage: ZOLOFT 75 MG/DAY?DAILY DOSE: 75 MILLIGRAM
     Route: 048
  10. ZOPICLONE [Suspect]
     Active Substance: ZOPICLONE
     Indication: Product used for unknown indication
     Dosage: ZOPICLONE 7.5 MG/DAY?DAILY DOSE: 7.5 MILLIGRAM
     Route: 048
  11. LITHIUM [Suspect]
     Active Substance: LITHIUM
  12. POLYETHYLENE GLYCOLS [Suspect]
     Active Substance: POLYETHYLENE GLYCOLS

REACTIONS (1)
  - Type 1 diabetes mellitus [Not Recovered/Not Resolved]

NARRATIVE: CASE EVENT DATE: 20230301
